FAERS Safety Report 19746958 (Version 4)
Quarter: 2024Q1

REPORT INFORMATION
  Report Type: Spontaneous
  Country: US (occurrence: US)
  Receive Date: 20210826
  Receipt Date: 20240119
  Transmission Date: 20240410
  Serious: Yes (Other)
  Sender: FDA-Public Use
  Company Number: US-JNJFOC-20210835709

PATIENT
  Sex: Female

DRUGS (10)
  1. ELMIRON [Suspect]
     Active Substance: PENTOSAN POLYSULFATE SODIUM
     Indication: Cystitis interstitial
     Route: 048
     Dates: start: 1999, end: 1999
  2. ELMIRON [Suspect]
     Active Substance: PENTOSAN POLYSULFATE SODIUM
     Dosage: 100MG 3X/DAY (TOTAL OF 300MG/DAY) + 100MG 2X/DAY (FOR A TOTAL OF 2X/DAY)
     Route: 048
     Dates: start: 1999, end: 2002
  3. ELMIRON [Suspect]
     Active Substance: PENTOSAN POLYSULFATE SODIUM
     Dosage: 100MG 3X/DAY (TOTAL OF 300MG/DAY) + 100MG 2X/DAY (FOR A TOTAL OF 2X/DAY)
     Route: 048
     Dates: start: 2002, end: 2006
  4. ELMIRON [Suspect]
     Active Substance: PENTOSAN POLYSULFATE SODIUM
     Dosage: 100MG 3X/DAY (TOTAL OF 300MG/DAY) + 100MG 2X/DAY (FOR A TOTAL OF 2X/DAY)
     Route: 048
     Dates: start: 2006, end: 2008
  5. ELMIRON [Suspect]
     Active Substance: PENTOSAN POLYSULFATE SODIUM
     Dosage: 100MG 3X/DAY (TOTAL OF 300MG/DAY) + 100MG 2X/DAY (FOR A TOTAL OF 2X/DAY)
     Route: 048
     Dates: start: 2008, end: 2011
  6. ELMIRON [Suspect]
     Active Substance: PENTOSAN POLYSULFATE SODIUM
     Route: 048
     Dates: start: 2011, end: 2014
  7. ELMIRON [Suspect]
     Active Substance: PENTOSAN POLYSULFATE SODIUM
     Route: 048
     Dates: start: 2014, end: 2016
  8. ELMIRON [Suspect]
     Active Substance: PENTOSAN POLYSULFATE SODIUM
     Route: 048
     Dates: start: 2016, end: 2020
  9. SYNTHROID [Concomitant]
     Active Substance: LEVOTHYROXINE SODIUM
     Indication: Hypothyroidism
     Dates: start: 2017
  10. LISINOPRIL [Concomitant]
     Active Substance: LISINOPRIL
     Indication: Hypertension
     Dates: start: 201912, end: 202106

REACTIONS (4)
  - Dry age-related macular degeneration [Unknown]
  - Pigmentary maculopathy [Not Recovered/Not Resolved]
  - Off label use [Unknown]
  - Inappropriate schedule of product administration [Unknown]

NARRATIVE: CASE EVENT DATE: 19990101
